FAERS Safety Report 17900394 (Version 1)
Quarter: 2020Q2

REPORT INFORMATION
  Report Type: Spontaneous
  Country: TW (occurrence: TW)
  Receive Date: 20200616
  Receipt Date: 20200616
  Transmission Date: 20200714
  Serious: Yes (Hospitalization)
  Sender: FDA-Public Use
  Company Number: TW-BAUSCH-BL-2020-017048

PATIENT
  Sex: Male

DRUGS (2)
  1. KHK4827 (BRODALUMAB) [Suspect]
     Active Substance: BRODALUMAB
     Indication: PUSTULAR PSORIASIS
  2. KHK4827 (BRODALUMAB) [Suspect]
     Active Substance: BRODALUMAB
     Indication: PSORIASIS
     Route: 058
     Dates: start: 202005, end: 202005

REACTIONS (1)
  - Dermatitis exfoliative generalised [Recovering/Resolving]

NARRATIVE: CASE EVENT DATE: 202005
